FAERS Safety Report 9775340 (Version 2)
Quarter: 2013Q4

REPORT INFORMATION
  Report Type: Spontaneous
  Country: IN (occurrence: IN)
  Receive Date: 20131220
  Receipt Date: 20131220
  Transmission Date: 20140711
  Serious: Yes (Death, Hospitalization, Other)
  Sender: FDA-Public Use
  Company Number: IN-BAXTER-2013BAX047978

PATIENT
  Age: 69 Year
  Sex: Male

DRUGS (3)
  1. DIANEAL PD-2 PERITONEAL DIALISIS SOLUTION ULTRABAG WITH 1.5% DEXTROSE [Suspect]
     Indication: PERITONEAL DIALYSIS
     Route: 033
     Dates: end: 201311
  2. DIANEAL PD-2 PERITONEAL DIALISIS SOLUTION ULTRABAG WITH 2.5% DEXTROSE [Suspect]
     Indication: PERITONEAL DIALYSIS
     Route: 033
     Dates: end: 201311
  3. LOW CALCIUM PERITONEAL DIALYSIS SOLUTION [Suspect]
     Indication: PERITONEAL DIALYSIS
     Route: 033
     Dates: end: 201311

REACTIONS (6)
  - Peritonitis [Fatal]
  - Pneumonitis [Unknown]
  - Multi-organ failure [Unknown]
  - Full blood count decreased [Unknown]
  - Peritoneal dialysis complication [Unknown]
  - Wrong technique in drug usage process [None]
